FAERS Safety Report 8557321-0 (Version None)
Quarter: 2012Q3

REPORT INFORMATION
  Report Type: 
  Country: None (occurrence: None)
  Receive Date: 20120801
  Receipt Date: 20120717
  Transmission Date: 20120928
  Serious: Yes (Other)
  Sender: FDA-Public Use
  Company Number: US-ROCHE-GNE322676

PATIENT
  Sex: Female

DRUGS (1)
  1. SOMATROPIN [Suspect]
     Indication: GROWTH HORMONE DEFICIENCY
     Dosage: .4 MG, QD
     Route: 058
     Dates: start: 20110714

REACTIONS (9)
  - INJECTION SITE PAIN [None]
  - TREMOR [None]
  - FIBROMYALGIA [None]
  - JOINT SWELLING [None]
  - OEDEMA PERIPHERAL [None]
  - ARTHRALGIA [None]
  - PAIN [None]
  - UNEVALUABLE EVENT [None]
  - DYSPHAGIA [None]
